FAERS Safety Report 25600191 (Version 1)
Quarter: 2025Q3

REPORT INFORMATION
  Report Type: Report from Study
  Country: IN (occurrence: IN)
  Receive Date: 20250724
  Receipt Date: 20250724
  Transmission Date: 20251020
  Serious: Yes (Death, Other)
  Sender: ROCHE
  Company Number: IN-ROCHE-10000345888

PATIENT
  Age: 70 Year
  Sex: Female

DRUGS (1)
  1. GAZYVA [Suspect]
     Active Substance: OBINUTUZUMAB
     Indication: Diffuse large B-cell lymphoma
     Route: 042
     Dates: start: 20250122

REACTIONS (5)
  - Death [Fatal]
  - Fatigue [Unknown]
  - Pyrexia [Unknown]
  - Neoplasm malignant [Unknown]
  - Infection [Unknown]
